FAERS Safety Report 10403309 (Version 2)
Quarter: 2014Q3

REPORT INFORMATION
  Report Type: Spontaneous
  Country: US (occurrence: US)
  Receive Date: 20140822
  Receipt Date: 20140908
  Transmission Date: 20150326
  Serious: No
  Sender: FDA-Public Use
  Company Number: US-009507513-1408USA009584

PATIENT
  Sex: Male
  Weight: 81.63 kg

DRUGS (10)
  1. AMLODIPINE [Concomitant]
     Active Substance: AMLODIPINE BESYLATE
  2. METOLAZONE. [Concomitant]
     Active Substance: METOLAZONE
  3. ATORVASTATIN [Concomitant]
     Active Substance: ATORVASTATIN
  4. FUROSEMIDE. [Concomitant]
     Active Substance: FUROSEMIDE
  5. JANUVIA [Suspect]
     Active Substance: SITAGLIPTIN PHOSPHATE
     Indication: TYPE 2 DIABETES MELLITUS
     Dosage: TOTAL DAILY DOSE: 50 MG
     Route: 048
     Dates: start: 201301
  6. PANTOPRAZOLE [Concomitant]
     Active Substance: PANTOPRAZOLE SODIUM
  7. ASPIRIN. [Concomitant]
     Active Substance: ASPIRIN
  8. JANTOVEN [Concomitant]
     Active Substance: WARFARIN SODIUM
  9. BYSTOLIC [Concomitant]
     Active Substance: NEBIVOLOL HYDROCHLORIDE
  10. KLOR-CON [Concomitant]
     Active Substance: POTASSIUM CHLORIDE

REACTIONS (2)
  - Wheezing [Unknown]
  - Cough [Unknown]
